FAERS Safety Report 7215732-X (Version None)
Quarter: 2011Q1

REPORT INFORMATION
  Report Type: 
  Country: None (occurrence: None)
  Receive Date: 20110107
  Receipt Date: 20101227
  Transmission Date: 20110831
  Serious: Yes (Hospitalization)
  Sender: FDA-Public Use
  Company Number: US-ELI_LILLY_AND_COMPANY-US201101000081

PATIENT
  Age: 47 Year
  Sex: Male

DRUGS (4)
  1. COGENTIN [Concomitant]
  2. PROLIXIN [Concomitant]
  3. ZYPREXA [Suspect]
     Indication: SCHIZOPHRENIA, PARANOID TYPE
     Dosage: UNK, DAILY (1/D)
     Dates: end: 20040101
  4. ANTIHYPERTENSIVES [Concomitant]
     Indication: HYPERTENSION

REACTIONS (6)
  - SALIVARY HYPERSECRETION [None]
  - HOSPITALISATION [None]
  - CONSTIPATION [None]
  - DYSPEPSIA [None]
  - VOMITING [None]
  - DRUG WITHDRAWAL SYNDROME [None]
